FAERS Safety Report 7983953 (Version 13)
Quarter: 2013Q4

REPORT INFORMATION
  Report Type: Spontaneous
  Country: US (occurrence: US)
  Receive Date: 20110609
  Receipt Date: 20131226
  Transmission Date: 20140711
  Serious: Yes (Other)
  Sender: FDA-Public Use
  Company Number: PHHY2011US47816

PATIENT
  Age: 9 Year
  Sex: Female

DRUGS (5)
  1. ILARIS [Suspect]
     Indication: URTICARIA
     Dosage: 90 MG, EVERY 8 WEEKS
     Route: 058
     Dates: start: 20090916
  2. ILARIS [Suspect]
     Dosage: 90 MG, EVERY 8 WEEKS
     Route: 058
     Dates: start: 20090916
  3. ILARIS [Suspect]
     Dosage: 90 MG, EVERY 8 WEEKS
     Route: 058
     Dates: start: 20090916
  4. ILARIS [Suspect]
     Indication: FAMILIAL COLD AUTOINFLAMMATORY SYNDROME
     Dosage: 75 MG EVERY 8 WEEKS
     Route: 058
  5. ILARIS [Suspect]
     Indication: CRYOPYRIN ASSOCIATED PERIODIC SYNDROME
     Dosage: 180 MG,0.5 ML
     Route: 058

REACTIONS (8)
  - Urinary tract infection enterococcal [Recovered/Resolved]
  - Vaginal infection [Unknown]
  - Abdominal pain upper [Recovering/Resolving]
  - Constipation [Recovered/Resolved]
  - Animal bite [Unknown]
  - Pyrexia [Unknown]
  - Pain [Unknown]
  - Anxiety [Unknown]
